FAERS Safety Report 9783083 (Version 1)
Quarter: 2013Q4

REPORT INFORMATION
  Report Type: Spontaneous
  Country: US (occurrence: US)
  Receive Date: 20131226
  Receipt Date: 20131226
  Transmission Date: 20140711
  Serious: No
  Sender: FDA-Public Use
  Company Number: US-ABBVIE-13P-163-1091738-00

PATIENT
  Sex: Female
  Weight: 104.42 kg

DRUGS (4)
  1. TEVETEN [Suspect]
     Indication: BLOOD PRESSURE
     Dates: start: 1996
  2. MOBIC [Concomitant]
     Indication: ARTHRITIS
  3. HYDROCODONE [Concomitant]
     Indication: PAIN
  4. MECLIZINE [Concomitant]
     Indication: DIZZINESS

REACTIONS (8)
  - Dysphonia [Not Recovered/Not Resolved]
  - Abasia [Recovered/Resolved]
  - Loss of consciousness [Recovered/Resolved]
  - Dyskinesia [Recovered/Resolved]
  - Sensory disturbance [Recovered/Resolved]
  - Product quality issue [Unknown]
  - Dysphonia [Recovered/Resolved]
  - Dyskinesia [Not Recovered/Not Resolved]
